FAERS Safety Report 25196640 (Version 2)
Quarter: 2025Q2

REPORT INFORMATION
  Report Type: Spontaneous
  Country: US (occurrence: US)
  Receive Date: 20250415
  Receipt Date: 20250425
  Transmission Date: 20250717
  Serious: Yes (Death, Hospitalization)
  Sender: TEVA
  Company Number: US-TEVA-VS-3319870

PATIENT
  Age: 66 Year
  Sex: Male

DRUGS (4)
  1. PREDNISONE [Suspect]
     Active Substance: PREDNISONE
     Indication: Immunosuppressant drug therapy
     Route: 065
  2. TACROLIMUS [Suspect]
     Active Substance: TACROLIMUS
     Indication: Immunosuppressant drug therapy
     Route: 065
  3. MYCOPHENOLATE MOFETIL [Suspect]
     Active Substance: MYCOPHENOLATE MOFETIL
     Indication: Immunosuppressant drug therapy
     Route: 065
  4. FLUOROURACIL [Suspect]
     Active Substance: FLUOROURACIL
     Indication: Squamous cell carcinoma
     Dosage: DOSAGE: 1 G/M^2 1?G/M2 PER DAY ON FOR 14?DAYS AND OFF FOR 7?DAYS; 2?CYCLES
     Route: 048

REACTIONS (3)
  - Drug ineffective [Fatal]
  - Squamous cell carcinoma of skin [Unknown]
  - Paradoxical drug reaction [Unknown]
